FAERS Safety Report 8811205 (Version 1)
Quarter: 2012Q4

REPORT INFORMATION
  Report Type: 
  Country: US (occurrence: US)
  Receive Date: 20120927
  Receipt Date: 20120927
  Transmission Date: 20130627
  Serious: Yes (Hospitalization)
  Sender: FDA-Public Use
  Company Number: US-SANOFI-AVENTIS-2012SA070212

PATIENT
  Age: 70 Year
  Sex: Male

DRUGS (4)
  1. LOVENOX [Suspect]
     Indication: VENOUS THROMBOEMBOLISM PROPHYLAXIS
     Route: 058
  2. MORPHINE SULFATE [Concomitant]
     Indication: PAIN
  3. LORAZEPAM [Concomitant]
     Indication: DELIRIUM TREMENS
  4. THIAMINE [Concomitant]
     Indication: DELIRIUM TREMENS

REACTIONS (7)
  - Subdural haematoma [Unknown]
  - Posture abnormal [Unknown]
  - Somnolence [Unknown]
  - Pupil fixed [Unknown]
  - Kussmaul respiration [Unknown]
  - Coma scale abnormal [Unknown]
  - Brain herniation [Unknown]
